FAERS Safety Report 16260587 (Version 1)
Quarter: 2019Q2

REPORT INFORMATION
  Report Type: Spontaneous
  Country: PL (occurrence: PL)
  Receive Date: 20190501
  Receipt Date: 20190501
  Transmission Date: 20190711
  Serious: Yes (Hospitalization)
  Sender: FDA-Public Use
  Company Number: PL-MYLANLABS-2019M1040947

PATIENT
  Age: 71 Year
  Sex: Male

DRUGS (1)
  1. ATORVASTATIN [Suspect]
     Active Substance: ATORVASTATIN
     Indication: HYPERCHOLESTEROLAEMIA
     Dosage: 20 MILLIGRAM, QD (CHRONICALLY)

REACTIONS (4)
  - Aspartate aminotransferase increased [Recovering/Resolving]
  - Immune-mediated necrotising myopathy [Recovering/Resolving]
  - Alanine aminotransferase increased [Recovering/Resolving]
  - Bladder cancer [Recovered/Resolved]
